FAERS Safety Report 4596121-3 (Version None)
Quarter: 2005Q1

REPORT INFORMATION
  Report Type: 
  Country: None (occurrence: None)
  Receive Date: 20050302
  Receipt Date: 20050201
  Transmission Date: 20050727
  Serious: Yes (Hospitalization, Other)
  Sender: FDA-Public Use
  Company Number: US-AMGEN-US110073

PATIENT
  Sex: Male
  Weight: 64 kg

DRUGS (5)
  1. ARANESP [Suspect]
     Indication: ANAEMIA
     Dates: start: 20040201, end: 20050101
  2. CYCLOSPORINE [Concomitant]
  3. PENTAMIDINE [Concomitant]
     Route: 055
  4. FOLIC ACID [Concomitant]
  5. VITAMIN B-12 [Concomitant]

REACTIONS (6)
  - BONE MARROW DEPRESSION [None]
  - DIARRHOEA [None]
  - PYREXIA [None]
  - RASH [None]
  - STOMATITIS [None]
  - THERAPEUTIC RESPONSE DECREASED [None]
